FAERS Safety Report 11793738 (Version 1)
Quarter: 2015Q4

REPORT INFORMATION
  Report Type: Spontaneous
  Country: US (occurrence: JP)
  Receive Date: 20151202
  Receipt Date: 20151202
  Transmission Date: 20160305
  Serious: Yes (Hospitalization)
  Sender: FDA-Public Use
  Company Number: JP-AKRON, INC.-1044890

PATIENT
  Age: 76 Year
  Sex: Female

DRUGS (2)
  1. ZIOPTAN [Suspect]
     Active Substance: TAFLUPROST
     Indication: NORMAL TENSION GLAUCOMA
     Route: 031
     Dates: start: 20150609
  2. TIMOLOL. [Suspect]
     Active Substance: TIMOLOL

REACTIONS (1)
  - Appendicitis [Recovered/Resolved]

NARRATIVE: CASE EVENT DATE: 20150802
